FAERS Safety Report 12605144 (Version 2)
Quarter: 2016Q3

REPORT INFORMATION
  Report Type: Spontaneous
  Country: BR (occurrence: BR)
  Receive Date: 20160729
  Receipt Date: 20160810
  Transmission Date: 20161109
  Serious: Yes (Hospitalization, Other)
  Sender: FDA-Public Use
  Company Number: BR-BEH-2016071559

PATIENT
  Age: 0 Day
  Sex: Female
  Weight: 2.61 kg

DRUGS (3)
  1. HUMAN IMMUNOGLOBULIN 5G [Suspect]
     Active Substance: HUMAN IMMUNOGLOBULIN G
     Indication: HAEMORRHAGE FOETAL
     Dosage: 12TH WEEK OF PREGNANCY
     Route: 064
  2. HUMAN IMMUNOGLOBULIN 5G [Suspect]
     Active Substance: HUMAN IMMUNOGLOBULIN G
     Indication: PLATELET DISORDER
     Dosage: 4TH WEEK OF PREGNANCY
     Route: 064
  3. HUMAN IMMUNOGLOBULIN 5G [Suspect]
     Active Substance: HUMAN IMMUNOGLOBULIN G
     Indication: ABORTION SPONTANEOUS
     Dosage: 20 TH WEEK OF PREGNANCY
     Route: 064

REACTIONS (2)
  - Premature baby [Recovered/Resolved]
  - Foetal distress syndrome [Recovered/Resolved]

NARRATIVE: CASE EVENT DATE: 20160716
